FAERS Safety Report 9123744 (Version 1)
Quarter: 2013Q1

REPORT INFORMATION
  Report Type: Spontaneous
  Country: US (occurrence: US)
  Receive Date: 20130116
  Receipt Date: 20130116
  Transmission Date: 20140127
  Serious: Yes (Other)
  Sender: FDA-Public Use
  Company Number: US-ELI_LILLY_AND_COMPANY-US201201000438

PATIENT
  Sex: Female

DRUGS (3)
  1. FORTEO [Suspect]
     Indication: OSTEOPOROSIS
     Dosage: 20 UG, QD
     Dates: start: 20110915
  2. FORTEO [Suspect]
     Dosage: 20 UG, QD
  3. VITAMIN D NOS [Concomitant]

REACTIONS (6)
  - Skin cancer [Unknown]
  - Vitamin D decreased [Unknown]
  - Injection site haemorrhage [Unknown]
  - Injection site pain [Unknown]
  - Increased upper airway secretion [Unknown]
  - Blood calcium increased [Unknown]
